FAERS Safety Report 24168757 (Version 2)
Quarter: 2025Q3

REPORT INFORMATION
  Report Type: Spontaneous
  Country: SG (occurrence: SG)
  Receive Date: 20240802
  Receipt Date: 20250808
  Transmission Date: 20251021
  Serious: Yes (Life-Threatening, Hospitalization)
  Sender: ALEXION PHARMACEUTICALS
  Company Number: 2024A176035

PATIENT
  Age: 18 Year
  Sex: Female

DRUGS (4)
  1. QUETIAPINE FUMARATE [Suspect]
     Active Substance: QUETIAPINE FUMARATE
     Indication: Product used for unknown indication
     Route: 065
  2. ESTAZOLAM [Suspect]
     Active Substance: ESTAZOLAM
     Indication: Product used for unknown indication
     Route: 065
  3. VALPROATE [Suspect]
     Active Substance: VALPROIC ACID
     Indication: Product used for unknown indication
     Route: 065
  4. SERTRALINE [Suspect]
     Active Substance: SERTRALINE HYDROCHLORIDE
     Indication: Product used for unknown indication
     Route: 065

REACTIONS (3)
  - Overdose [Unknown]
  - Suicide attempt [Unknown]
  - Coma [Recovered/Resolved]
